FAERS Safety Report 5729500-9 (Version None)
Quarter: 2008Q2

REPORT INFORMATION
  Report Type: 
  Country: None (occurrence: None)
  Receive Date: 20080506
  Receipt Date: 20080425
  Transmission Date: 20081010
  Serious: Yes (Hospitalization)
  Sender: FDA-Public Use
  Company Number: US-ELI_LILLY_AND_COMPANY-US200804002248

PATIENT
  Sex: Female

DRUGS (5)
  1. HUMALOG [Suspect]
     Dosage: 8 U, UNK
  2. HUMALOG [Suspect]
     Dosage: 8 U, UNK
     Route: 058
  3. HUMALOG [Suspect]
     Dosage: 1 U, PER 10 CARBS
  4. LANTUS [Concomitant]
     Dosage: 15 U, UNK
  5. LEVEMIR [Concomitant]

REACTIONS (10)
  - ANXIETY [None]
  - BALANCE DISORDER [None]
  - FALL [None]
  - GAIT DISTURBANCE [None]
  - HYPERGLYCAEMIA [None]
  - INJECTION SITE PAIN [None]
  - PAIN [None]
  - STRESS [None]
  - UPPER LIMB FRACTURE [None]
  - WRONG DRUG ADMINISTERED [None]
